FAERS Safety Report 13850179 (Version 1)
Quarter: 2017Q3

REPORT INFORMATION
  Report Type: Other
  Country: GB (occurrence: KR)
  Receive Date: 20170809
  Receipt Date: 20170809
  Transmission Date: 20171127
  Serious: Yes (Life-Threatening, Other)
  Sender: FDA-Public Use
  Company Number: KR-INTERNATIONAL MEDICATION SYSTEMS, LIMITED-2024425

PATIENT
  Sex: Male
  Weight: 1.73 kg

DRUGS (9)
  1. AMPICILLIN (AMPICILLIN SODIUM) [Concomitant]
     Active Substance: AMPICILLIN SODIUM
  2. SALINE BOLUS [Concomitant]
  3. NITRIC OXIDE, 80 PPM [Suspect]
     Active Substance: NITRIC OXIDE
     Route: 045
  4. MEROPENEM. [Concomitant]
     Active Substance: MEROPENEM
  5. NOREPINEPHRINE. [Suspect]
     Active Substance: NOREPINEPHRINE
  6. DOPAMINE [Suspect]
     Active Substance: DOPAMINE\DOPAMINE HYDROCHLORIDE
  7. DOBUTAMINE [Suspect]
     Active Substance: DOBUTAMINE\DOBUTAMINE HYDROCHLORIDE
  8. NITRIC OXIDE. [Suspect]
     Active Substance: NITRIC OXIDE
     Route: 045
  9. EPINEPHRINE. [Suspect]
     Active Substance: EPINEPHRINE
     Indication: PERSISTENT FOETAL CIRCULATION

REACTIONS (1)
  - Drug ineffective [Unknown]
